FAERS Safety Report 6266152-6 (Version None)
Quarter: 2009Q3

REPORT INFORMATION
  Report Type: 
  Country: None (occurrence: None)
  Receive Date: 20090713
  Receipt Date: 20090707
  Transmission Date: 20100115
  Serious: Yes (Hospitalization)
  Sender: FDA-Public Use
  Company Number: JP-AVENTIS-200911632JP

PATIENT
  Age: 74 Year
  Sex: Male
  Weight: 45.9 kg

DRUGS (6)
  1. TAXOTERE [Suspect]
     Route: 041
     Dates: start: 20090519, end: 20090519
  2. TAXOTERE [Suspect]
     Route: 041
     Dates: start: 20090519, end: 20090519
  3. TS-1 [Concomitant]
     Route: 048
     Dates: start: 20090519, end: 20090601
  4. TS-1 [Concomitant]
     Route: 048
     Dates: start: 20090519, end: 20090601
  5. CISPLATIN [Concomitant]
     Dates: start: 20090225, end: 20090301
  6. CISPLATIN [Concomitant]
     Dates: start: 20090225, end: 20090301

REACTIONS (6)
  - DECREASED APPETITE [None]
  - DIARRHOEA [None]
  - FEBRILE NEUTROPENIA [None]
  - PENILE ULCERATION [None]
  - STOMATITIS [None]
  - VOMITING [None]
